FAERS Safety Report 8966934 (Version 1)
Quarter: 2012Q4

REPORT INFORMATION
  Report Type: 
  Country: IT (occurrence: IT)
  Receive Date: 20121214
  Receipt Date: 20121214
  Transmission Date: 20130627
  Serious: Yes (Other)
  Sender: FDA-Public Use
  Company Number: IT-PFIZER INC-2012312344

PATIENT
  Age: 42 Year
  Sex: Female

DRUGS (2)
  1. ZITROMAX [Suspect]
     Indication: RESPIRATORY INFECTION
     Dosage: 500 mg, 1x/day
     Route: 048
     Dates: start: 20121108, end: 20121108
  2. ZANTIPRES [Concomitant]
     Indication: BRONCHIAL INFECTION
     Dosage: 7.5 mg, UNK
     Route: 048
     Dates: start: 20050101, end: 20121108

REACTIONS (2)
  - Bronchial oedema [Recovered/Resolved]
  - Tongue oedema [Recovered/Resolved]
